FAERS Safety Report 10757771 (Version 3)
Quarter: 2015Q1

REPORT INFORMATION
  Report Type: Spontaneous
  Country: JP (occurrence: JP)
  Receive Date: 20150203
  Receipt Date: 20150219
  Transmission Date: 20150721
  Serious: Yes (Death, Other)
  Sender: FDA-Public Use
  Company Number: JP-CELGENE-JPN-2015015580

PATIENT
  Age: 79 Year
  Sex: Male
  Weight: 54 kg

DRUGS (20)
  1. ABRAXANE [Suspect]
     Active Substance: PACLITAXEL
     Indication: PANCREATIC CARCINOMA
     Route: 041
     Dates: start: 20150108, end: 20150115
  2. OLMETEC [Concomitant]
     Active Substance: OLMESARTAN MEDOXOMIL
     Indication: PRODUCT USED FOR UNKNOWN INDICATION
     Dosage: 160.7143 MILLIGRAM
     Route: 048
     Dates: start: 20150108
  3. AMLODIPINE [Concomitant]
     Active Substance: AMLODIPINE BESYLATE
     Indication: PRODUCT USED FOR UNKNOWN INDICATION
     Dosage: 200 MICROGRAM
     Route: 048
     Dates: start: 20150108
  4. ALDACTONE [Concomitant]
     Active Substance: SPIRONOLACTONE
     Indication: PRODUCT USED FOR UNKNOWN INDICATION
     Dosage: 3 GRAM
     Route: 048
     Dates: start: 20150108
  5. CLARITH [Concomitant]
     Active Substance: CLARITHROMYCIN
     Indication: PRODUCT USED FOR UNKNOWN INDICATION
     Route: 048
     Dates: start: 20150108
  6. ALBUMIN [Concomitant]
     Active Substance: ALBUMIN (HUMAN)
     Indication: CIRCULATORY COLLAPSE
     Route: 065
     Dates: start: 20150122
  7. REMODULIN [Concomitant]
     Active Substance: TREPROSTINIL
     Indication: DISSEMINATED INTRAVASCULAR COAGULATION
     Route: 065
     Dates: start: 20150122
  8. GEMZAR [Suspect]
     Active Substance: GEMCITABINE HYDROCHLORIDE
     Indication: PANCREATIC CARCINOMA
     Route: 041
     Dates: start: 20150108, end: 20150115
  9. PARIET [Concomitant]
     Active Substance: RABEPRAZOLE SODIUM
     Indication: PRODUCT USED FOR UNKNOWN INDICATION
     Route: 048
     Dates: start: 20150108
  10. GRAN [Concomitant]
     Active Substance: FILGRASTIM
     Indication: PRODUCT USED FOR UNKNOWN INDICATION
     Route: 065
     Dates: start: 20150122
  11. MEROPEN [Concomitant]
     Active Substance: MEROPENEM
     Indication: SEPSIS
     Dosage: 3 MILLIGRAM
     Route: 065
     Dates: start: 20150122
  12. ZITHROMAC [Concomitant]
     Active Substance: AZITHROMYCIN DIHYDRATE
     Indication: PANCYTOPENIA
     Dosage: 20 MILLIGRAM
     Route: 065
     Dates: start: 20150122
  13. NEUTROGIN [Concomitant]
     Active Substance: LENOGRASTIM
     Indication: PANCYTOPENIA
     Route: 065
     Dates: start: 20150122
  14. FRESH FROZEN PLASMA [Concomitant]
     Active Substance: HUMAN PLASMA
     Indication: CIRCULATORY COLLAPSE
     Dosage: 200 MILLIGRAM
     Route: 065
     Dates: start: 20150122
  15. FRESH FROZEN PLASMA [Concomitant]
     Active Substance: HUMAN PLASMA
     Indication: HYPOPROTEINAEMIA
  16. ALBUMIN [Concomitant]
     Active Substance: ALBUMIN (HUMAN)
     Indication: HYPOPROTEINAEMIA
  17. SOLU-CORTEF [Concomitant]
     Active Substance: HYDROCORTISONE SODIUM SUCCINATE
     Indication: PRODUCT USED FOR UNKNOWN INDICATION
     Dosage: 75 MICROGRAM
     Route: 065
     Dates: start: 20150122
  18. WARFARIN [Concomitant]
     Active Substance: WARFARIN
     Indication: PRODUCT USED FOR UNKNOWN INDICATION
     Route: 048
     Dates: start: 20150108
  19. PLATELETS [Concomitant]
     Active Substance: HUMAN PLATELET, ALLOGENIC
     Indication: PANCYTOPENIA
     Route: 065
     Dates: start: 20150122
  20. VENOGLOBULIN [Concomitant]
     Active Substance: HUMAN IMMUNOGLOBULIN G
     Indication: SEPSIS
     Dosage: 20 MILLIGRAM
     Route: 065
     Dates: start: 20150122

REACTIONS (7)
  - Bone marrow failure [Fatal]
  - Disseminated intravascular coagulation [Fatal]
  - Pneumonia [Fatal]
  - Multi-organ failure [Fatal]
  - Pancytopenia [Fatal]
  - Septic shock [Unknown]
  - Sepsis [Fatal]

NARRATIVE: CASE EVENT DATE: 20150122
